FAERS Safety Report 25015864 (Version 1)
Quarter: 2025Q1

REPORT INFORMATION
  Report Type: Spontaneous
  Country: US (occurrence: US)
  Receive Date: 20250227
  Receipt Date: 20250227
  Transmission Date: 20250409
  Serious: Yes (Hospitalization, Other)
  Sender: BRISTOL-MYERS SQUIBB COMPANY
  Company Number: US-BRISTOL-MYERS SQUIBB COMPANY-2025-026919

PATIENT
  Age: 81 Year
  Sex: Male
  Weight: 68.86 kg

DRUGS (5)
  1. REVLIMID [Suspect]
     Active Substance: LENALIDOMIDE
     Indication: Plasma cell myeloma
     Dosage: TAKES 1 CAPSULE PO DAILY ON DAYS 1 TO 21 OF EACH 28 DAY CYCLE.
     Route: 048
     Dates: start: 20241030
  2. DEXAMETHASONE [Concomitant]
     Active Substance: DEXAMETHASONE
  3. ACETAMINOPHEN\HYDROCODONE [Concomitant]
     Active Substance: ACETAMINOPHEN\HYDROCODONE
  4. ONDANSETRON [Concomitant]
     Active Substance: ONDANSETRON
  5. OXYCODONE [Concomitant]
     Active Substance: OXYCODONE

REACTIONS (1)
  - Pulmonary thrombosis [Unknown]

NARRATIVE: CASE EVENT DATE: 20250115
